FAERS Safety Report 25868774 (Version 7)
Quarter: 2025Q4

REPORT INFORMATION
  Report Type: Report from Study
  Country: IL (occurrence: IL)
  Receive Date: 20251001
  Receipt Date: 20251216
  Transmission Date: 20260117
  Serious: Yes (Hospitalization, Other)
  Sender: TAKEDA
  Company Number: IL-TAKEDA-2025TUS079942

PATIENT
  Sex: Male

DRUGS (6)
  1. VELAGLUCERASE ALFA [Suspect]
     Active Substance: VELAGLUCERASE ALFA
     Indication: Gaucher^s disease
     Dosage: 15 INTERNATIONAL UNIT/KILOGRAM, Q2WEEKS
     Dates: start: 20110727, end: 202203
  2. VELAGLUCERASE ALFA [Suspect]
     Active Substance: VELAGLUCERASE ALFA
     Dosage: 22 INTERNATIONAL UNIT/KILOGRAM, Q2WEEKS
     Dates: start: 20220315, end: 20230127
  3. VELAGLUCERASE ALFA [Suspect]
     Active Substance: VELAGLUCERASE ALFA
     Dosage: 22 INTERNATIONAL UNIT/KILOGRAM, Q2WEEKS
     Dates: start: 20230305
  4. ENOXAPARIN SODIUM [Concomitant]
     Active Substance: ENOXAPARIN SODIUM
     Dosage: UNK
  5. PROPRANOLOL HYDROCHLORIDE [Concomitant]
     Active Substance: PROPRANOLOL HYDROCHLORIDE
     Indication: Portal vein thrombosis
     Dosage: 20 MILLIGRAM
  6. ELIQUIS [Concomitant]
     Active Substance: APIXABAN
     Indication: Fracture
     Dosage: 2.5 MILLIGRAM, BID
     Dates: start: 20190430

REACTIONS (2)
  - Liver abscess [Recovering/Resolving]
  - Chills [Not Recovered/Not Resolved]

NARRATIVE: CASE EVENT DATE: 20250904
